FAERS Safety Report 7620157-9 (Version None)
Quarter: 2011Q3

REPORT INFORMATION
  Report Type: 
  Country: None (occurrence: None)
  Receive Date: 20110719
  Receipt Date: 20110715
  Transmission Date: 20111222
  Serious: No
  Sender: FDA-Public Use
  Company Number: US-TEVA-290638USA

PATIENT
  Sex: Female
  Weight: 75.818 kg

DRUGS (6)
  1. AZILECT [Suspect]
     Indication: PARKINSON'S DISEASE
     Route: 048
     Dates: start: 20101201
  2. MOXIFLOXACIN HYDROCHLORIDE [Suspect]
  3. PRAMIPEXOLE DIHYDROCHLORIDE [Concomitant]
  4. MULTI-VITAMINS [Concomitant]
  5. VITAMIN D [Concomitant]
  6. CALCIUM CARBONATE [Concomitant]

REACTIONS (1)
  - CONTUSION [None]
